FAERS Safety Report 5676456-3 (Version None)
Quarter: 2008Q2

REPORT INFORMATION
  Report Type: 
  Country: None (occurrence: None)
  Receive Date: 20080310
  Receipt Date: 20080213
  Transmission Date: 20081010
  Serious: Yes (Other)
  Sender: FDA-Public Use
  Company Number: 08-095

PATIENT
  Age: 58 Year
  Sex: Female
  Weight: 78.9259 kg

DRUGS (8)
  1. ALEVE [Suspect]
     Indication: HEADACHE
     Dosage: 440 MG, DAILY, ORAL
     Route: 048
     Dates: end: 20080207
  2. METOPROLOL SUCCINATE [Concomitant]
  3. LISINOPRIL [Concomitant]
  4. GLYBURIDE [Concomitant]
  5. NOVOLIN [Concomitant]
  6. LORTAB [Concomitant]
  7. TOPAMAX [Concomitant]
  8. POTASSIUM CHLORIDE [Concomitant]

REACTIONS (1)
  - BLOOD PRESSURE INCREASED [None]
